FAERS Safety Report 20450563 (Version 9)
Quarter: 2022Q3

REPORT INFORMATION
  Report Type: Report from Study
  Country: CZ (occurrence: None)
  Receive Date: 20220209
  Receipt Date: 20220726
  Transmission Date: 20221026
  Serious: Yes (Hospitalization)
  Sender: FDA-Public Use
  Company Number: CZ-Eisai Medical Research-EC-2021-104626

PATIENT
  Age: 16 Year
  Sex: Male
  Weight: 88 kg

DRUGS (10)
  1. LENVATINIB [Suspect]
     Active Substance: LENVATINIB
     Indication: Spindle cell sarcoma
     Route: 048
     Dates: start: 20211007, end: 20211112
  2. LENVATINIB [Suspect]
     Active Substance: LENVATINIB
     Dosage: DOSE REDUCED, DOSE REPORTED AS 19 MG
     Route: 048
     Dates: start: 20211118, end: 20211126
  3. LENVATINIB [Suspect]
     Active Substance: LENVATINIB
     Dosage: DOSE REDUCED, DOSE REPORTED AS 15 MG
     Route: 048
     Dates: start: 20211214, end: 20220202
  4. LENVATINIB [Suspect]
     Active Substance: LENVATINIB
     Dosage: DOSE REDUCED, DOSE REPORTED AS 12 MG
     Route: 048
     Dates: start: 20220222, end: 20220301
  5. BISEPTOL [Concomitant]
     Active Substance: SULFAMETHOXAZOLE\TRIMETHOPRIM
     Dates: start: 20210627
  6. FAMOTIDINE [Concomitant]
     Active Substance: FAMOTIDINE
     Dates: start: 20211014
  7. DIHYDROCODEINE BITARTRATE [Concomitant]
     Active Substance: DIHYDROCODEINE BITARTRATE
     Dates: start: 20211021, end: 20211203
  8. PERITOL [CYPROHEPTADINE HYDROCHLORIDE] [Concomitant]
     Dates: start: 20211104
  9. LEVOTHYROXINE SODIUM [Concomitant]
     Active Substance: LEVOTHYROXINE SODIUM
     Dates: start: 20211105, end: 20211202
  10. FENTANYL [Concomitant]
     Active Substance: FENTANYL
     Dates: start: 20211125, end: 20211201

REACTIONS (2)
  - Pneumothorax [Recovered/Resolved]
  - Device related infection [Recovered/Resolved]

NARRATIVE: CASE EVENT DATE: 20211202
